FAERS Safety Report 25014646 (Version 2)
Quarter: 2025Q2

REPORT INFORMATION
  Report Type: Spontaneous
  Country: CN (occurrence: CN)
  Receive Date: 20250226
  Receipt Date: 20250608
  Transmission Date: 20250716
  Serious: Yes (Other)
  Sender: COHERUS
  Company Number: CN-SHANGHAI JUNSHI BIOSCIENCES CO., LTD.-CN2025013137

PATIENT

DRUGS (15)
  1. TORIPALIMAB [Suspect]
     Active Substance: TORIPALIMAB
     Indication: Bladder cancer
     Dosage: 240 MG(D1), Q3W
     Route: 041
     Dates: start: 20241115, end: 20241115
  2. TORIPALIMAB [Suspect]
     Active Substance: TORIPALIMAB
     Dates: start: 20241207, end: 20241207
  3. TORIPALIMAB [Suspect]
     Active Substance: TORIPALIMAB
     Dates: start: 20241229, end: 20241229
  4. TORIPALIMAB [Suspect]
     Active Substance: TORIPALIMAB
     Route: 041
     Dates: start: 20250118, end: 20250118
  5. TORIPALIMAB [Suspect]
     Active Substance: TORIPALIMAB
     Dates: start: 20250212, end: 20250212
  6. PACLITAXEL [Suspect]
     Active Substance: PACLITAXEL
     Indication: Bladder cancer
     Dosage: 200 MG (D1), Q3W
     Route: 041
     Dates: start: 20241115, end: 20241115
  7. PACLITAXEL [Suspect]
     Active Substance: PACLITAXEL
     Route: 041
     Dates: start: 20241207, end: 20241207
  8. PACLITAXEL [Suspect]
     Active Substance: PACLITAXEL
     Dates: start: 20241229, end: 20241229
  9. PACLITAXEL [Suspect]
     Active Substance: PACLITAXEL
     Route: 041
     Dates: start: 20250118, end: 20250118
  10. PACLITAXEL [Suspect]
     Active Substance: PACLITAXEL
     Dates: start: 20250212, end: 20250212
  11. CISPLATIN [Suspect]
     Active Substance: CISPLATIN
     Indication: Bladder cancer
     Route: 041
     Dates: start: 20241115
  12. CISPLATIN [Suspect]
     Active Substance: CISPLATIN
     Dates: start: 20241207
  13. CISPLATIN [Suspect]
     Active Substance: CISPLATIN
     Dates: start: 20241229
  14. CISPLATIN [Suspect]
     Active Substance: CISPLATIN
     Route: 041
     Dates: start: 20250118, end: 20250120
  15. CISPLATIN [Suspect]
     Active Substance: CISPLATIN
     Dates: start: 20250120

REACTIONS (2)
  - Pruritus [Recovering/Resolving]
  - Neuritis [Recovering/Resolving]

NARRATIVE: CASE EVENT DATE: 20250118
